FAERS Safety Report 25807340 (Version 1)
Quarter: 2025Q3

REPORT INFORMATION
  Report Type: Spontaneous
  Country: US (occurrence: None)
  Receive Date: 20250915
  Receipt Date: 20250915
  Transmission Date: 20251021
  Serious: Yes (Hospitalization)
  Sender: FDA-CTU
  Company Number: None

PATIENT
  Age: 81 Year
  Sex: Male

DRUGS (11)
  1. POMALYST [Suspect]
     Active Substance: POMALIDOMIDE
     Indication: Plasma cell myeloma
     Route: 048
     Dates: start: 20250808
  2. ACYCLOVIR  TAB 400MG [Concomitant]
  3. ALBUTEROL  AER  HFA [Concomitant]
  4. AMITRIPTYLIN TAB 50MG [Concomitant]
  5. AMLODIPINE [Concomitant]
     Active Substance: AMLODIPINE BESYLATE
  6. ASPIRIN  TAB  325MG EC [Concomitant]
  7. ATORVASTATIN [Concomitant]
     Active Substance: ATORVASTATIN
  8. ATOVAQUONE [Concomitant]
     Active Substance: ATOVAQUONE
  9. AZITHROMYCIN [Concomitant]
     Active Substance: AZITHROMYCIN
  10. BUSPIRONE TAB 5MG [Concomitant]
  11. CARVEDILOL [Concomitant]
     Active Substance: CARVEDILOL

REACTIONS (2)
  - Road traffic accident [None]
  - Intentional dose omission [None]

NARRATIVE: CASE EVENT DATE: 20250901
